FAERS Safety Report 23014804 (Version 1)
Quarter: 2023Q4

REPORT INFORMATION
  Report Type: Other
  Country: None (occurrence: IT)
  Receive Date: 20231002
  Receipt Date: 20231002
  Transmission Date: 20240110
  Serious: Yes (Hospitalization, Other)
  Sender: FDA-Public Use
  Company Number: IT-Marksans Pharma Limited-2146538

PATIENT
  Age: 72 Year
  Sex: Female

DRUGS (4)
  1. GABAPENTIN [Suspect]
     Active Substance: GABAPENTIN
     Indication: Product used for unknown indication
     Route: 065
  2. TICLOPIDINE [Suspect]
     Active Substance: TICLOPIDINE
     Route: 065
  3. ATORVASTATIN [Suspect]
     Active Substance: ATORVASTATIN
     Route: 065
  4. ALPRAZOLAM [Suspect]
     Active Substance: ALPRAZOLAM
     Route: 065

REACTIONS (4)
  - Hypercoagulation [Unknown]
  - Iliac artery arteriosclerosis [Recovered/Resolved]
  - Aortic arteriosclerosis [Recovered/Resolved]
  - Left ventricular hypertrophy [Unknown]
